FAERS Safety Report 10170437 (Version 1)
Quarter: 2014Q2

REPORT INFORMATION
  Report Type: Spontaneous
  Country: CN (occurrence: CN)
  Receive Date: 20140513
  Receipt Date: 20140513
  Transmission Date: 20141212
  Serious: Yes (Other)
  Sender: FDA-Public Use
  Company Number: CN-BAXTER-2014BAX023366

PATIENT
  Age: 65 Year
  Sex: Male
  Weight: 55 kg

DRUGS (2)
  1. 20% MANNITOL INJECTION [Suspect]
     Indication: GENERAL SYMPTOM
     Route: 041
     Dates: start: 20130129, end: 20130129
  2. DEXAMETHASONE SODIUM PHOSPHATE [Concomitant]
     Indication: OEDEMA
     Route: 041
     Dates: start: 20130129, end: 20130129

REACTIONS (2)
  - Skin reaction [Recovering/Resolving]
  - Discomfort [Unknown]
